FAERS Safety Report 5468666-5 (Version None)
Quarter: 2007Q3

REPORT INFORMATION
  Report Type: 
  Country: None (occurrence: None)
  Receive Date: 20070924
  Receipt Date: 20070907
  Transmission Date: 20080115
  Serious: Yes (Death, Hospitalization, Other)
  Sender: FDA-Public Use
  Company Number: 2007US-09881

PATIENT
  Age: 86 Year
  Sex: Male

DRUGS (7)
  1. ISOPTIN SR [Suspect]
     Indication: ATRIAL FIBRILLATION
     Dosage: 40 MG, TID, ORAL, 80 MG, TID, ORAL
     Route: 048
     Dates: end: 20050925
  2. ISOPTIN SR [Suspect]
     Indication: ATRIAL FIBRILLATION
     Dosage: 40 MG, TID, ORAL, 80 MG, TID, ORAL
     Route: 048
     Dates: start: 20050925, end: 20050929
  3. FUROSEMIDE TABLET (FUROSEMIDE) [Concomitant]
  4. COMBIVENT [Concomitant]
  5. PREDNISOLONE [Concomitant]
  6. DOXYCYCLINE MONOHYDRATE [Concomitant]
  7. FELODIPINE [Concomitant]

REACTIONS (7)
  - ATRIAL FIBRILLATION [None]
  - CARDIAC FAILURE [None]
  - CEREBROVASCULAR ACCIDENT [None]
  - CONDITION AGGRAVATED [None]
  - GENERAL PHYSICAL HEALTH DETERIORATION [None]
  - HEART RATE INCREASED [None]
  - NEGATIVE CARDIAC INOTROPIC EFFECT [None]
